FAERS Safety Report 6417739-9 (Version None)
Quarter: 2009Q4

REPORT INFORMATION
  Report Type: 
  Country: None (occurrence: None)
  Receive Date: 20091027
  Receipt Date: 20091027
  Transmission Date: 20100525
  Serious: Yes (Hospitalization)
  Sender: FDA-Public Use
  Company Number: None

PATIENT
  Age: 45 Year
  Sex: Female
  Weight: 128 kg

DRUGS (6)
  1. WARFARIN SODIUM [Suspect]
     Indication: PULMONARY EMBOLISM
     Dosage: 3 MG PO QD
     Route: 048
  2. FLUTICASONE/SALMETEROL [Concomitant]
  3. ALBUTEROL [Concomitant]
  4. CALCIUM CARBONATE [Concomitant]
  5. OMEPRAZOLE [Concomitant]
  6. DOCUSATE [Concomitant]

REACTIONS (3)
  - BLOODY DISCHARGE [None]
  - HAEMORRHAGE [None]
  - INTERNATIONAL NORMALISED RATIO INCREASED [None]
